FAERS Safety Report 4923746-5 (Version None)
Quarter: 2006Q1

REPORT INFORMATION
  Report Type: 
  Country: None (occurrence: None)
  Receive Date: 20060227
  Receipt Date: 20060213
  Transmission Date: 20060701
  Serious: Yes (Hospitalization)
  Sender: FDA-Public Use
  Company Number: US-MERCK-0602USA04163

PATIENT
  Sex: Female

DRUGS (1)
  1. VIOXX [Suspect]
     Route: 048

REACTIONS (7)
  - ARTERIAL DISORDER [None]
  - CARDIAC DISORDER [None]
  - CEREBRAL DISORDER [None]
  - CORONARY ARTERY DISEASE [None]
  - INJURY [None]
  - LUNG DISORDER [None]
  - RENAL DISORDER [None]
